FAERS Safety Report 8347818-0 (Version None)
Quarter: 2012Q2

REPORT INFORMATION
  Report Type: 
  Country: None (occurrence: None)
  Receive Date: 20120509
  Receipt Date: 20120501
  Transmission Date: 20120825
  Serious: Yes (Hospitalization, Congenital Anomaly)
  Sender: FDA-Public Use
  Company Number: US-GLAXOSMITHKLINE-A0976826A

PATIENT
  Sex: Male

DRUGS (3)
  1. MULTI-VITAMINS [Concomitant]
  2. NEXIUM [Concomitant]
  3. PAXIL [Suspect]
     Indication: DEPRESSION
     Dosage: 30MG IN THE MORNING
     Route: 064

REACTIONS (5)
  - FOETAL EXPOSURE DURING PREGNANCY [None]
  - ATRIAL SEPTAL DEFECT [None]
  - SUBARACHNOID HAEMORRHAGE [None]
  - VENTRICULAR SEPTAL DEFECT [None]
  - CONVULSION [None]
